FAERS Safety Report 19850255 (Version 1)
Quarter: 2021Q3

REPORT INFORMATION
  Report Type: Spontaneous
  Country: IN (occurrence: IN)
  Receive Date: 20210917
  Receipt Date: 20210917
  Transmission Date: 20211014
  Serious: Yes (Other)
  Sender: FDA-Public Use
  Company Number: IN-PFIZER INC-202101163746

PATIENT
  Age: 72 Year
  Sex: Female

DRUGS (18)
  1. CARBOPLATIN. [Suspect]
     Active Substance: CARBOPLATIN
     Dosage: UNK (2ND CYCLE/D1)
     Dates: start: 20210121
  2. CARBOPLATIN. [Suspect]
     Active Substance: CARBOPLATIN
     Dosage: UNK (2ND CYCLE/D8)
     Dates: start: 20210129
  3. CARBOPLATIN. [Suspect]
     Active Substance: CARBOPLATIN
     Dosage: UNK (1ST CYCLE/D8)
     Dates: start: 20210107
  4. GEMCITABINE. [Suspect]
     Active Substance: GEMCITABINE
     Dosage: UNK
     Dates: start: 20210107
  5. GEMCITABINE. [Suspect]
     Active Substance: GEMCITABINE
     Dosage: UNK
     Dates: start: 20210220
  6. PEMETREXED. [Suspect]
     Active Substance: PEMETREXED
     Dosage: UNK (2ND CYCLE)
     Dates: start: 20210601
  7. GEMCITABINE. [Suspect]
     Active Substance: GEMCITABINE
     Dosage: UNK
     Dates: start: 20210212
  8. CARBOPLATIN. [Suspect]
     Active Substance: CARBOPLATIN
     Dosage: UNK (3RD CYCLE/D1)
     Dates: start: 20210212
  9. GEMCITABINE. [Suspect]
     Active Substance: GEMCITABINE
     Indication: NEOPLASM MALIGNANT
     Dosage: UNK
     Dates: start: 20201230
  10. GEMCITABINE. [Suspect]
     Active Substance: GEMCITABINE
     Dosage: UNK
     Dates: start: 20210129
  11. CARBOPLATIN. [Suspect]
     Active Substance: CARBOPLATIN
     Dosage: UNK (3RD CYCLE/D8)
     Dates: start: 20210220
  12. CARBOPLATIN. [Suspect]
     Active Substance: CARBOPLATIN
     Dosage: UNK (1ST CYCLE)
     Dates: start: 20210511
  13. CARBOPLATIN. [Suspect]
     Active Substance: CARBOPLATIN
     Dosage: UNK (3RD CYCLE)
     Dates: start: 20210622
  14. PEMETREXED. [Suspect]
     Active Substance: PEMETREXED
     Dosage: UNK (3RD CYCLE)
     Dates: start: 20210622
  15. CARBOPLATIN. [Suspect]
     Active Substance: CARBOPLATIN
     Indication: NEOPLASM MALIGNANT
     Dosage: UNK (1ST CYCLE/D1)
     Dates: start: 20201230
  16. CARBOPLATIN. [Suspect]
     Active Substance: CARBOPLATIN
     Dosage: UNK (2ND CYCLE)
     Dates: start: 20210601
  17. GEMCITABINE. [Suspect]
     Active Substance: GEMCITABINE
     Dosage: UNK
     Dates: start: 20210121
  18. PEMETREXED. [Suspect]
     Active Substance: PEMETREXED
     Indication: NEOPLASM MALIGNANT
     Dosage: UNK (1ST CYCLE)
     Dates: start: 20210511

REACTIONS (3)
  - Neoplasm progression [Unknown]
  - Anaemia [Unknown]
  - Pleural effusion [Unknown]

NARRATIVE: CASE EVENT DATE: 20210315
